FAERS Safety Report 21790211 (Version 1)
Quarter: 2022Q4

REPORT INFORMATION
  Report Type: Spontaneous
  Country: US (occurrence: None)
  Receive Date: 20221228
  Receipt Date: 20221228
  Transmission Date: 20230113
  Serious: Yes (Disabling, Other)
  Sender: FDA-Public Use
  Company Number: None

PATIENT
  Age: 40 Year
  Sex: Female
  Weight: 72 kg

DRUGS (1)
  1. SEROQUEL [Suspect]
     Active Substance: QUETIAPINE FUMARATE
     Indication: Insomnia
     Dosage: OTHER QUANTITY : 1 TABLET(S);?FREQUENCY : DAILY;?
     Route: 048
     Dates: start: 20111101, end: 20211231

REACTIONS (33)
  - Weight increased [None]
  - Obsessive-compulsive symptom [None]
  - Dermatillomania [None]
  - Trichotillomania [None]
  - Tongue thrust [None]
  - Feeling abnormal [None]
  - Time perception altered [None]
  - Amnesia [None]
  - Cognitive disorder [None]
  - Oedema peripheral [None]
  - Oedema peripheral [None]
  - Withdrawal syndrome [None]
  - Insomnia [None]
  - Depression [None]
  - Anxiety [None]
  - Apathy [None]
  - Malaise [None]
  - Mood swings [None]
  - Anger [None]
  - Anhedonia [None]
  - Loss of libido [None]
  - Tachycardia [None]
  - Illogical thinking [None]
  - Speech disorder [None]
  - Headache [None]
  - Decreased appetite [None]
  - Fluid intake reduced [None]
  - Agoraphobia [None]
  - Social anxiety disorder [None]
  - Suicidal ideation [None]
  - Thinking abnormal [None]
  - Schizoaffective disorder [None]
  - Off label use [None]

NARRATIVE: CASE EVENT DATE: 20181001
